FAERS Safety Report 7491670-2 (Version None)
Quarter: 2011Q2

REPORT INFORMATION
  Report Type: 
  Country: None (occurrence: None)
  Receive Date: 20110519
  Receipt Date: 20110419
  Transmission Date: 20111010
  Serious: No
  Sender: FDA-Public Use
  Company Number: US-BAYER-2011-034944

PATIENT
  Age: 79 Year
  Sex: Female
  Weight: 59 kg

DRUGS (6)
  1. MULTI-VITAMIN [Concomitant]
  2. ALEVE (CAPLET) [Suspect]
     Indication: ARTHRITIS
     Dosage: 440 MG, BID, BOTTLE COUNT 24S
     Route: 048
  3. PRAVACHOL [Concomitant]
  4. ASPIRIN [Concomitant]
  5. CALCIUM CARBONATE [Concomitant]
  6. ARICEPT [Concomitant]

REACTIONS (1)
  - NO ADVERSE EVENT [None]
